FAERS Safety Report 25739130 (Version 1)
Quarter: 2025Q3

REPORT INFORMATION
  Report Type: Report from Study
  Country: US (occurrence: US)
  Receive Date: 20250829
  Receipt Date: 20250829
  Transmission Date: 20251021
  Serious: Yes (Hospitalization)
  Sender: LIQUIDIA TECHNOLOGIES
  Company Number: US-LIQUIDIA TECHNOLOGIES, INC.-LIQ-2025-000374

PATIENT

DRUGS (1)
  1. YUTREPIA [Suspect]
     Active Substance: TREPROSTINIL SODIUM
     Indication: Pulmonary arterial hypertension
     Dosage: 106 MICROGRAM, QID
     Route: 055
     Dates: start: 202507

REACTIONS (2)
  - Fall [Unknown]
  - Foot fracture [Unknown]

NARRATIVE: CASE EVENT DATE: 20250801
